FAERS Safety Report 6063150-2 (Version None)
Quarter: 2009Q1

REPORT INFORMATION
  Report Type: 
  Country: None (occurrence: None)
  Receive Date: 20090203
  Receipt Date: 20090121
  Transmission Date: 20090719
  Serious: Yes (Hospitalization)
  Sender: FDA-Public Use
  Company Number: AR-ROCHE-610175

PATIENT
  Sex: Male

DRUGS (13)
  1. PEG-INTERFERON ALFA 2A (RO 25-8310) [Suspect]
     Indication: HEPATITIS C
     Route: 058
     Dates: start: 20081029, end: 20081231
  2. RIBAVIRIN [Suspect]
     Indication: HEPATITIS C
     Route: 048
     Dates: start: 20081029, end: 20090108
  3. TELAPREVIR [Suspect]
     Indication: HEPATITIS C
     Route: 048
     Dates: start: 20081029, end: 20090104
  4. ATENOLOL [Concomitant]
     Route: 048
     Dates: start: 20070301
  5. AMLODIPINA [Concomitant]
     Route: 048
     Dates: start: 20070301
  6. LOPERAMIDE HCL [Concomitant]
     Route: 048
     Dates: start: 20081107, end: 20081108
  7. BETAMETHASONE [Concomitant]
     Route: 061
     Dates: start: 20081105, end: 20090106
  8. ACETAMINOPHEN [Concomitant]
     Dosage: INDICATION: FLU SYNDROME
     Route: 048
     Dates: start: 20081029, end: 20081030
  9. ACETAMINOPHEN [Concomitant]
     Dosage: INDICATION: FEVER
     Route: 048
     Dates: start: 20081202, end: 20081205
  10. ACETAMINOPHEN [Concomitant]
     Dosage: INDICATION: FEVER
     Route: 048
     Dates: start: 20090107, end: 20090107
  11. ACETAMINOPHEN [Concomitant]
     Route: 048
     Dates: start: 20081202, end: 20081205
  12. ACETAMINOPHEN [Concomitant]
     Route: 048
     Dates: start: 20090107, end: 20090107
  13. POTASSIUM CHLORIDE [Concomitant]
     Dosage: DRUG NAME REPORTED AS CONTROL K.
     Route: 048
     Dates: start: 20081215

REACTIONS (1)
  - PERICARDITIS [None]
